FAERS Safety Report 6360040-2 (Version None)
Quarter: 2009Q3

REPORT INFORMATION
  Report Type: 
  Country: None (occurrence: None)
  Receive Date: 20090917
  Receipt Date: 20090907
  Transmission Date: 20100115
  Serious: Yes (Hospitalization, Other)
  Sender: FDA-Public Use
  Company Number: GB-BAYER-200931359GPV

PATIENT
  Sex: Female

DRUGS (1)
  1. CANESTEN PESSARY [Suspect]
     Indication: DRUG USE FOR UNKNOWN INDICATION
     Route: 067
     Dates: start: 20090801

REACTIONS (4)
  - ABDOMINAL PAIN UPPER [None]
  - DIZZINESS [None]
  - NAUSEA [None]
  - VULVOVAGINAL DISCOMFORT [None]
